FAERS Safety Report 11137920 (Version 1)
Quarter: 2015Q2

REPORT INFORMATION
  Report Type: Report from Study
  Country: US (occurrence: US)
  Receive Date: 20150526
  Receipt Date: 20150526
  Transmission Date: 20150821
  Serious: No
  Sender: FDA-Public Use
  Company Number: US-MALLINCKRODT-T201404552

PATIENT
  Sex: Female

DRUGS (3)
  1. REBIF [Concomitant]
     Active Substance: INTERFERON BETA-1A
     Dosage: UNK, 3X WEEK
     Dates: start: 2007, end: 201312
  2. H.P. ACTHAR [Suspect]
     Active Substance: CORTICOTROPIN
     Dosage: 1 ML, QD
     Route: 065
     Dates: start: 2014, end: 2014
  3. H.P. ACTHAR [Suspect]
     Active Substance: CORTICOTROPIN
     Indication: MULTIPLE SCLEROSIS
     Dosage: 1 ML, QD
     Route: 065
     Dates: start: 2010, end: 2010

REACTIONS (5)
  - Euphoric mood [Recovered/Resolved]
  - Feeling jittery [Recovered/Resolved]
  - Exposure during pregnancy [Recovered/Resolved]
  - Malaise [Recovered/Resolved]
  - Insomnia [Recovered/Resolved]

NARRATIVE: CASE EVENT DATE: 2010
